FAERS Safety Report 9230468 (Version 1)
Quarter: 2013Q2

REPORT INFORMATION
  Report Type: Spontaneous
  Country: US (occurrence: US)
  Receive Date: 20130415
  Receipt Date: 20130415
  Transmission Date: 20140414
  Serious: Yes (Death)
  Sender: FDA-Public Use
  Company Number: US-GENZYME-CERZ-1002891

PATIENT
  Sex: Female

DRUGS (2)
  1. CEREZYME [Suspect]
     Indication: GAUCHER^S DISEASE
     Dosage: 4400 MG, Q3W
     Route: 042
     Dates: end: 201010
  2. VPRIV [Concomitant]
     Indication: PRODUCT USED FOR UNKNOWN INDICATION
     Dosage: UNK
     Route: 065
     Dates: start: 201010

REACTIONS (1)
  - Death [Fatal]
